FAERS Safety Report 10166767 (Version 2)
Quarter: 2014Q2

REPORT INFORMATION
  Report Type: Spontaneous
  Country: US (occurrence: None)
  Receive Date: 20140508
  Receipt Date: 20140523
  Transmission Date: 20141212
  Serious: Yes (Death, Hospitalization)
  Sender: FDA-Public Use
  Company Number: UTC-048094

PATIENT
  Age: 70 Year
  Sex: Female

DRUGS (1)
  1. TYVASO [Suspect]
     Indication: PULMONARY ARTERIAL HYPERTENSION
     Dosage: 2.4 MILLIGRAM/MILLILITERS(0.6 MILLIGRAM/MILLILITERS,4 IN 1 D)
     Route: 055
     Dates: start: 20140403

REACTIONS (3)
  - Asthenia [None]
  - Dehydration [None]
  - Fatigue [None]
